FAERS Safety Report 4370421-4 (Version None)
Quarter: 2004Q2

REPORT INFORMATION
  Report Type: 
  Country: None (occurrence: None)
  Receive Date: 20040603
  Receipt Date: 20040206
  Transmission Date: 20050107
  Serious: No
  Sender: FDA-Public Use
  Company Number: US-BRISTOL-MYERS SQUIBB COMPANY-12498317

PATIENT
  Age: 48 Year
  Sex: Male

DRUGS (2)
  1. ABILIFY [Suspect]
     Indication: SCHIZOPHRENIA, PARANOID TYPE
     Dosage: INITIATED ON 07-JAN-04, 10 MG/DAY; INCREASED TO 45MG ON 05-FEB-2004
     Route: 048
     Dates: start: 20040107
  2. SEROQUEL [Concomitant]

REACTIONS (2)
  - PRESCRIBED OVERDOSE [None]
  - SOMNOLENCE [None]
